FAERS Safety Report 10640515 (Version 1)
Quarter: 2014Q4

REPORT INFORMATION
  Report Type: Report from Study
  Country: TR (occurrence: TR)
  Receive Date: 20141209
  Receipt Date: 20141209
  Transmission Date: 20150529
  Serious: Yes (Other)
  Sender: FDA-Public Use
  Company Number: TR-BAYER-2014-178916

PATIENT
  Age: 59 Year
  Sex: Female
  Weight: 70 kg

DRUGS (1)
  1. BETAFERON [Suspect]
     Active Substance: INTERFERON BETA-1B
     Dosage: 8 MIU, DAILY
     Route: 058
     Dates: start: 20031230, end: 20141110

REACTIONS (3)
  - Inappropriate schedule of drug administration [None]
  - Multiple sclerosis [None]
  - General physical health deterioration [None]
